FAERS Safety Report 14980102 (Version 2)
Quarter: 2018Q2

REPORT INFORMATION
  Report Type: Spontaneous
  Country: DE (occurrence: DE)
  Receive Date: 20180606
  Receipt Date: 20180621
  Transmission Date: 20180711
  Serious: Yes (Hospitalization)
  Sender: FDA-Public Use
  Company Number: DE-TEVA-2018-DE-902851

PATIENT
  Age: 75 Year
  Sex: Female

DRUGS (14)
  1. METOPROLOL. [Suspect]
     Active Substance: METOPROLOL
     Route: 065
  2. DIGITOXIN [Concomitant]
     Active Substance: DIGITOXIN
     Route: 065
  3. INSULIN HUMAN [Concomitant]
     Active Substance: INSULIN HUMAN
     Dosage: BY SCHEME
     Route: 065
  4. KALIUMCITRAT [Concomitant]
     Route: 065
  5. RANOLAZIN [Concomitant]
     Active Substance: RANOLAZINE
     Route: 065
  6. RAMIPRIL. [Suspect]
     Active Substance: RAMIPRIL
     Dosage: 1-0-0-0.5
     Route: 065
  7. TORASEMIDE [Suspect]
     Active Substance: TORSEMIDE
     Route: 065
  8. ACETYLSALICYLSAEURE [Concomitant]
     Active Substance: ASPIRIN
     Route: 065
  9. GLIMEPIRID [Concomitant]
     Active Substance: GLIMEPIRIDE
     Route: 065
  10. PHENPROCOUMON [Concomitant]
     Active Substance: PHENPROCOUMON
     Dosage: ACCORDING TO INR
     Route: 065
  11. XIPAMID [Suspect]
     Active Substance: XIPAMIDE
     Route: 065
  12. ISOSORBIDMONONITRAT [Suspect]
     Active Substance: ISOSORBIDE MONONITRATE
     Route: 065
  13. SIMVASTATIN. [Concomitant]
     Active Substance: SIMVASTATIN
     Route: 065
  14. METFORMIN [Concomitant]
     Active Substance: METFORMIN HYDROCHLORIDE
     Route: 065

REACTIONS (2)
  - Fracture [Unknown]
  - Fall [Unknown]
